FAERS Safety Report 8674770 (Version 2)
Quarter: 2012Q4

REPORT INFORMATION
  Report Type: Report from Study
  Country: DE (occurrence: DE)
  Receive Date: 20120720
  Receipt Date: 20121112
  Transmission Date: 20130627
  Serious: Yes (Hospitalization)
  Sender: FDA-Public Use
  Company Number: DE-ABBOTT-12P-062-0955450-00

PATIENT
  Age: 62 Year
  Sex: Female
  Weight: 62 kg

DRUGS (4)
  1. HUMIRA 40 MG/0.8 ML PEN [Suspect]
     Indication: RHEUMATOID ARTHRITIS
     Route: 058
     Dates: start: 20090930
  2. LANTAREL [Concomitant]
     Indication: RHEUMATOID ARTHRITIS
     Dosage: Weekly
     Route: 048
     Dates: start: 20040824
  3. FOLIC ACID [Concomitant]
     Indication: PRODUCT USED FOR UNKNOWN INDICATION
     Dosage: Weekly
     Route: 048
     Dates: start: 20110725
  4. ATACAND PLUS [Concomitant]
     Indication: HYPERTENSION
     Dosage: 32/12.5 mg once daily
     Route: 048
     Dates: start: 20070724

REACTIONS (3)
  - Sudden hearing loss [Recovered/Resolved]
  - Tinnitus [Not Recovered/Not Resolved]
  - Meniere^s disease [Unknown]
